FAERS Safety Report 5775444-6 (Version None)
Quarter: 2008Q2

REPORT INFORMATION
  Report Type: 
  Country: None (occurrence: None)
  Receive Date: 20080613
  Receipt Date: 20080604
  Transmission Date: 20081010
  Serious: Yes (Death)
  Sender: FDA-Public Use
  Company Number: 2008AL0047981

PATIENT
  Age: 69 Year
  Sex: Male

DRUGS (2)
  1. DIGOXIN [Suspect]
     Indication: ARRHYTHMIA
     Dosage: 0.125MG, DAILY, PO
     Route: 048
  2. ZOCOR [Concomitant]

REACTIONS (2)
  - CARDIO-RESPIRATORY ARREST [None]
  - PALPITATIONS [None]
